FAERS Safety Report 16625011 (Version 2)
Quarter: 2019Q4

REPORT INFORMATION
  Report Type: Spontaneous
  Country: CA (occurrence: CA)
  Receive Date: 20190724
  Receipt Date: 20191220
  Transmission Date: 20200122
  Serious: Yes (Other)
  Sender: FDA-Public Use
  Company Number: CA-PFIZER INC-2019310469

PATIENT
  Age: 58 Year
  Sex: Male

DRUGS (6)
  1. MEDROXYPROGESTERONE ACETATE. [Suspect]
     Active Substance: MEDROXYPROGESTERONE ACETATE
     Indication: HUNTINGTON^S DISEASE
     Dosage: 200 MG, WEEKLY
     Route: 030
     Dates: start: 20120119, end: 201202
  2. MEDROXYPROGESTERONE ACETATE. [Suspect]
     Active Substance: MEDROXYPROGESTERONE ACETATE
     Indication: AGITATION
     Dosage: 400 MG, EVERY 2 WEEKS
     Route: 030
     Dates: start: 201202, end: 20120221
  3. ZUCLOPENTHIXOL [Concomitant]
     Active Substance: ZUCLOPENTHIXOL
     Indication: AGITATION
     Dosage: 200 MG, EVERY 2 WEEKS
     Dates: start: 20120212
  4. MEDROXYPROGESTERONE ACETATE. [Suspect]
     Active Substance: MEDROXYPROGESTERONE ACETATE
     Indication: AGGRESSION
  5. ZUCLOPENTHIXOL [Concomitant]
     Active Substance: ZUCLOPENTHIXOL
     Indication: AGGRESSION
  6. ZUCLOPENTHIXOL [Concomitant]
     Active Substance: ZUCLOPENTHIXOL
     Indication: HUNTINGTON^S DISEASE
     Dosage: 150 MG, EVERY 2 WEEKS
     Dates: start: 20120114, end: 20120211

REACTIONS (4)
  - Product use in unapproved indication [Unknown]
  - Abdominal distension [Recovered/Resolved]
  - Fluid retention [Recovered/Resolved]
  - Off label use [Unknown]

NARRATIVE: CASE EVENT DATE: 20120119
